FAERS Safety Report 10836025 (Version 1)
Quarter: 2015Q1

REPORT INFORMATION
  Report Type: Report from Study
  Country: BE (occurrence: BE)
  Receive Date: 20150219
  Receipt Date: 20150219
  Transmission Date: 20150721
  Serious: Yes (Death, Hospitalization)
  Sender: FDA-Public Use
  Company Number: BE-ABBVIE-15P-013-1348690-00

PATIENT
  Age: 87 Year
  Sex: Male

DRUGS (3)
  1. DUODOPA [Suspect]
     Active Substance: CARBIDOPA\LEVODOPA
     Indication: PARKINSON^S DISEASE
     Dosage: AM = 5 ML, CD = 0.9 ML/H DURING 16H, ED = 0.5 ML
     Route: 050
     Dates: start: 20130812, end: 20130816
  2. DUODOPA [Suspect]
     Active Substance: CARBIDOPA\LEVODOPA
     Dosage: AM = 5 ML, CD = 0.8 ML/H DURING 16H, ED = 0.5 ML
     Route: 050
     Dates: start: 20150123, end: 20150213
  3. DUODOPA [Suspect]
     Active Substance: CARBIDOPA\LEVODOPA
     Dosage: DOSE CONTINUOUSLY MONITORED AND ADAPTED
     Route: 050
     Dates: start: 20130816, end: 20150123

REACTIONS (4)
  - Pneumonia [Unknown]
  - Hospitalisation [Unknown]
  - Death [Fatal]
  - Disease complication [Unknown]

NARRATIVE: CASE EVENT DATE: 20150213
